FAERS Safety Report 8997874 (Version 1)
Quarter: 2013Q1

REPORT INFORMATION
  Report Type: Spontaneous
  Country: US (occurrence: US)
  Receive Date: 20130104
  Receipt Date: 20130104
  Transmission Date: 20140127
  Serious: Yes (Other)
  Sender: FDA-Public Use
  Company Number: US-ROCHE-1172931

PATIENT
  Sex: Female
  Weight: 75.36 kg

DRUGS (16)
  1. PEGASYS [Suspect]
     Indication: HEPATITIS C
     Dosage: 0.5 ML
     Route: 065
     Dates: start: 20120516, end: 20121022
  2. RIBAVIRIN [Concomitant]
     Indication: PRODUCT USED FOR UNKNOWN INDICATION
     Route: 065
  3. INCIVEK [Concomitant]
     Indication: PRODUCT USED FOR UNKNOWN INDICATION
     Route: 065
  4. COLACE [Concomitant]
     Route: 065
  5. BISACODIL [Concomitant]
     Route: 065
  6. ABREVA [Concomitant]
     Route: 065
  7. ZOFRAN [Concomitant]
     Route: 048
  8. METHADONE [Concomitant]
     Route: 065
  9. DEPO-PROVERA [Concomitant]
     Dosage: 150 MG/ML
     Route: 048
  10. SERTRALINE HCL [Concomitant]
     Route: 048
  11. ADVIL [Concomitant]
     Route: 065
  12. LYRICA [Concomitant]
     Route: 048
  13. DOXEPIN HCL [Concomitant]
     Route: 048
  14. VYVANSE [Concomitant]
     Route: 048
  15. ADVAIR [Concomitant]
     Dosage: 250-50 MCG
     Route: 065
  16. PROVENTIL [Concomitant]
     Dosage: 2 PUFFS TWICE A DAY
     Route: 065

REACTIONS (4)
  - Corneal dystrophy [Recovering/Resolving]
  - Vision blurred [Unknown]
  - Diplopia [Recovering/Resolving]
  - Corneal disorder [Unknown]
